FAERS Safety Report 10019233 (Version 1)
Quarter: 2014Q1

REPORT INFORMATION
  Report Type: Spontaneous
  Country: US (occurrence: None)
  Receive Date: 20140314
  Receipt Date: 20140314
  Transmission Date: 20141002
  Serious: Yes (Hospitalization)
  Sender: FDA-Public Use
  Company Number: None

PATIENT
  Age: 63 Year
  Sex: Male
  Weight: 110.9 kg

DRUGS (2)
  1. PROLEUKIN [Suspect]
     Indication: METASTATIC RENAL CELL CARCINOMA
     Dates: start: 20140217, end: 20140221
  2. FOSAPREPITANT [Suspect]
     Indication: NAUSEA
     Dates: start: 20140217

REACTIONS (7)
  - Hypotension [None]
  - Tachycardia [None]
  - Hypoxia [None]
  - Sepsis [None]
  - Pneumonia [None]
  - Renal failure acute [None]
  - Mental impairment [None]
